FAERS Safety Report 8276626 (Version 4)
Quarter: 2013Q4

REPORT INFORMATION
  Report Type: Spontaneous
  Country: US (occurrence: US)
  Receive Date: 20111206
  Receipt Date: 20131220
  Transmission Date: 20140711
  Serious: Yes (Death, Hospitalization)
  Sender: FDA-Public Use
  Company Number: US-GLAXOSMITHKLINE-A0871764A

PATIENT
  Age: 68 Year
  Sex: Female
  Weight: 119.5 kg

DRUGS (7)
  1. AVANDIA [Suspect]
     Indication: TYPE 2 DIABETES MELLITUS
     Route: 048
     Dates: start: 2002, end: 20041207
  2. GLUCOPHAGE [Concomitant]
  3. GLUCOTROL [Concomitant]
  4. NORVASC [Concomitant]
  5. PREMARIN [Concomitant]
  6. DIOVAN [Concomitant]
  7. LIPITOR [Concomitant]

REACTIONS (9)
  - Intestinal ischaemia [Fatal]
  - Cardiogenic shock [Fatal]
  - Sudden cardiac death [Unknown]
  - Cardiac failure congestive [Unknown]
  - Macular oedema [Unknown]
  - Multiple fractures [Unknown]
  - Myocardial infarction [Unknown]
  - Atrial fibrillation [Unknown]
  - Cardiovascular disorder [Fatal]
